FAERS Safety Report 24272875 (Version 1)
Quarter: 2024Q3

REPORT INFORMATION
  Report Type: Spontaneous
  Country: US (occurrence: US)
  Receive Date: 20240902
  Receipt Date: 20240902
  Transmission Date: 20241017
  Serious: Yes (Other)
  Sender: NOVARTIS
  Company Number: US-002147023-NVSC2024US175497

PATIENT
  Sex: Female

DRUGS (2)
  1. KISQALI [Suspect]
     Active Substance: RIBOCICLIB
     Indication: Product used for unknown indication
     Route: 065
  2. FULVESTRANT [Suspect]
     Active Substance: FULVESTRANT
     Indication: Product used for unknown indication
     Dosage: UNK
     Route: 065
     Dates: start: 20240806

REACTIONS (11)
  - Renal impairment [Unknown]
  - Malaise [Unknown]
  - Bone pain [Unknown]
  - Arthralgia [Unknown]
  - Gait disturbance [Unknown]
  - Dysgeusia [Unknown]
  - Fatigue [Unknown]
  - Dysuria [Unknown]
  - White blood cell count decreased [Unknown]
  - Haemoglobin decreased [Unknown]
  - Drug intolerance [Unknown]
